FAERS Safety Report 8836634 (Version 1)
Quarter: 2012Q4

REPORT INFORMATION
  Report Type: Spontaneous
  Country: US (occurrence: None)
  Receive Date: 20121010
  Receipt Date: 20121010
  Transmission Date: 20130627
  Serious: Yes (Death, Hospitalization, Other)
  Sender: FDA-Public Use
  Company Number: 2012MA011745

PATIENT
  Age: 4 Year
  Sex: Female

DRUGS (1)
  1. METOCLOPRAMIDE TABLETS USP, 10 MG (PUREPAC) [Suspect]
     Indication: NAUSEA

REACTIONS (18)
  - Cardiogenic shock [None]
  - Hypertension [None]
  - Tachycardia [None]
  - Hyperhidrosis [None]
  - Hypotension [None]
  - Respiratory failure [None]
  - Electrocardiogram ST segment elevation [None]
  - Cardiomyopathy [None]
  - Mitral valve incompetence [None]
  - Aortic stenosis [None]
  - Respiratory acidosis [None]
  - Coagulopathy [None]
  - Renal failure [None]
  - Hepatic failure [None]
  - Hyperpyrexia [None]
  - Sinus tachycardia [None]
  - Aortic rupture [None]
  - Phaeochromocytoma [None]
